FAERS Safety Report 7349305-5 (Version None)
Quarter: 2011Q1

REPORT INFORMATION
  Report Type: 
  Country: None (occurrence: None)
  Receive Date: 20110314
  Receipt Date: 20110308
  Transmission Date: 20110831
  Serious: Yes (Hospitalization)
  Sender: FDA-Public Use
  Company Number: JP-EISAI INC-E2090-01519-SPO-JP

PATIENT
  Age: 14 Year
  Sex: Female

DRUGS (1)
  1. EXCEGRAN [Suspect]
     Indication: EPILEPSY
     Dosage: 300 MG
     Route: 048
     Dates: start: 20100501, end: 20110101

REACTIONS (1)
  - CALCULUS URINARY [None]
